FAERS Safety Report 5724753-5 (Version None)
Quarter: 2008Q2

REPORT INFORMATION
  Report Type: 
  Country: None (occurrence: None)
  Receive Date: 20080501
  Receipt Date: 20080424
  Transmission Date: 20081010
  Serious: Yes (Other)
  Sender: FDA-Public Use
  Company Number: PHEH2008US04061

PATIENT
  Sex: Male

DRUGS (2)
  1. DIOVAN [Suspect]
     Dosage: 80 MG, UNK
     Route: 048
     Dates: start: 20080207
  2. ASPIRIN [Suspect]
     Dosage: UNK, UNK

REACTIONS (2)
  - DIARRHOEA [None]
  - HAEMORRHAGE [None]
